FAERS Safety Report 16713381 (Version 1)
Quarter: 2019Q3

REPORT INFORMATION
  Report Type: Other
  Country: NL (occurrence: NL)
  Receive Date: 20190818
  Receipt Date: 20190818
  Transmission Date: 20191004
  Serious: Yes (Hospitalization)
  Sender: FDA-Public Use
  Company Number: NL-INCYTE CORPORATION-2019IN008294

PATIENT

DRUGS (3)
  1. OMARPROZOL [Concomitant]
     Indication: PRODUCT USED FOR UNKNOWN INDICATION
     Dosage: UNK
     Route: 065
  2. CARBASALATE CALCIUM [Concomitant]
     Active Substance: CARBASPIRIN
     Indication: PRODUCT USED FOR UNKNOWN INDICATION
     Dosage: 100 MG, UNK
     Route: 065
  3. JAKAVI [Suspect]
     Active Substance: RUXOLITINIB
     Indication: MYELOFIBROSIS
     Dosage: 1 DF, UNK
     Route: 065

REACTIONS (4)
  - Onychomycosis [Recovered/Resolved]
  - Skin cancer [Recovered/Resolved]
  - Bowen^s disease [Recovered/Resolved]
  - Actinic keratosis [Recovered/Resolved]
